FAERS Safety Report 13658232 (Version 3)
Quarter: 2020Q3

REPORT INFORMATION
  Report Type: Report from Study
  Country: JP (occurrence: JP)
  Receive Date: 20170616
  Receipt Date: 20180129
  Transmission Date: 20201105
  Serious: Yes (Death, Hospitalization, Other)
  Sender: FDA-Public Use
  Company Number: JP-ASTRAZENECA-2016SE42107

PATIENT
  Age: 68 Year
  Sex: Male
  Weight: 52.7 kg

DRUGS (18)
  1. DIAMOX SEQUELS [Concomitant]
     Active Substance: ACETAZOLAMIDE
     Indication: RETINAL DETACHMENT
     Route: 048
     Dates: start: 20160226
  2. MYDRIN?P [Concomitant]
     Active Substance: PHENYLEPHRINE HYDROCHLORIDE\TROPICAMIDE
     Route: 047
     Dates: start: 20160224, end: 20160407
  3. BASEN [VOGLIBOSE] [Concomitant]
     Active Substance: VOGLIBOSE
     Route: 065
     Dates: start: 20151120
  4. HIRUDOID [Concomitant]
     Active Substance: GLYCOSAMINOGLYCANS
     Indication: PRURITUS
     Dosage: 0.3%
     Route: 065
     Dates: start: 2016
  5. OXINORM (JAPAN) [Concomitant]
     Active Substance: OXYCODONE HYDROCHLORIDE
     Route: 065
     Dates: start: 20160411, end: 20160417
  6. TREMELIMUMAB. [Suspect]
     Active Substance: TREMELIMUMAB
     Indication: SQUAMOUS CELL CARCINOMA OF HEAD AND NECK
     Dosage: 52.0MG ONCE/SINGLE ADMINISTRATION
     Route: 042
     Dates: start: 20160324, end: 20160324
  7. JANUVIA [Concomitant]
     Active Substance: SITAGLIPTIN PHOSPHATE
     Route: 048
     Dates: start: 201311
  8. OXYCONTIN [Concomitant]
     Active Substance: OXYCODONE HYDROCHLORIDE
     Route: 065
     Dates: start: 20160411, end: 20160417
  9. LUMIGAN [Concomitant]
     Active Substance: BIMATOPROST
     Indication: RETINAL DETACHMENT
     Dosage: DAILY
     Route: 047
     Dates: start: 20160229
  10. COSOPT [Concomitant]
     Active Substance: DORZOLAMIDE HYDROCHLORIDE\TIMOLOL MALEATE
     Indication: RETINAL DETACHMENT
     Route: 047
     Dates: start: 20160205
  11. AZULENE [Concomitant]
     Active Substance: AZULENE
     Route: 002
     Dates: start: 2016
  12. SODIUM PICOSULFATE [Concomitant]
     Active Substance: SODIUM PICOSULFATE
     Indication: PROPHYLAXIS
     Route: 048
     Dates: start: 20160411, end: 20160417
  13. MEDI4736 [Suspect]
     Active Substance: DURVALUMAB
     Indication: SQUAMOUS CELL CARCINOMA OF HEAD AND NECK
     Dosage: 1040.0MG ONCE/SINGLE ADMINISTRATION
     Route: 042
     Dates: start: 20160324, end: 20160324
  14. FASUDIL HYDROCHLORIDE [Concomitant]
     Active Substance: FASUDIL HYDROCHLORIDE
     Route: 047
     Dates: start: 20160229
  15. LOXOPROFEN [Concomitant]
     Active Substance: LOXOPROFEN
     Route: 065
     Dates: start: 20160411
  16. RINDERON (BETAMETHASONE) [Concomitant]
     Active Substance: BETAMETHASONE
     Indication: RETINAL DETACHMENT
     Route: 047
     Dates: start: 20160224
  17. ALPHAGAN P [Concomitant]
     Active Substance: BRIMONIDINE TARTRATE
     Indication: RETINAL DETACHMENT
     Route: 047
     Dates: start: 20160224
  18. ANTEBATE [Concomitant]
     Active Substance: BETAMETHASONE DIPROPIONATE
     Indication: PRURITUS
     Dosage: 0.05%
     Route: 065
     Dates: start: 2016

REACTIONS (3)
  - Streptococcal sepsis [Recovered/Resolved]
  - Pulmonary embolism [Recovered/Resolved]
  - Abscess neck [Recovered/Resolved]

NARRATIVE: CASE EVENT DATE: 20160406
